FAERS Safety Report 6163866-3 (Version None)
Quarter: 2009Q2

REPORT INFORMATION
  Report Type: 
  Country: None (occurrence: None)
  Receive Date: 20090422
  Receipt Date: 20090421
  Transmission Date: 20091009
  Serious: Yes (Other)
  Sender: FDA-Public Use
  Company Number: US-BRISTOL-MYERS SQUIBB COMPANY-14581581

PATIENT

DRUGS (1)
  1. ERBITUX [Suspect]
     Dates: start: 20081015

REACTIONS (1)
  - ULCERATIVE KERATITIS [None]
